FAERS Safety Report 16489262 (Version 1)
Quarter: 2019Q2

REPORT INFORMATION
  Report Type: Spontaneous
  Country: US (occurrence: US)
  Receive Date: 20190628
  Receipt Date: 20190628
  Transmission Date: 20190711
  Serious: No
  Sender: FDA-Public Use
  Company Number: US-ACCORD-097791

PATIENT
  Age: 75 Year
  Sex: Female
  Weight: 72.57 kg

DRUGS (1)
  1. CLONAZEPAM ACCORD [Suspect]
     Active Substance: CLONAZEPAM
     Indication: RESTLESS LEGS SYNDROME
     Dates: start: 20181215, end: 20181217

REACTIONS (5)
  - Off label use [Unknown]
  - Product substitution issue [Unknown]
  - Withdrawal syndrome [Recovered/Resolved]
  - Insomnia [Unknown]
  - Drug ineffective [Unknown]
